FAERS Safety Report 20176974 (Version 1)
Quarter: 2021Q4

REPORT INFORMATION
  Report Type: Spontaneous
  Country: US (occurrence: None)
  Receive Date: 20211209
  Receipt Date: 20211209
  Transmission Date: 20220303
  Serious: No
  Sender: FDA-Public Use
  Company Number: None

PATIENT
  Age: 65 Year
  Sex: Female

DRUGS (1)
  1. IVERMECTIN [Suspect]
     Active Substance: IVERMECTIN

REACTIONS (13)
  - Decreased appetite [None]
  - Diarrhoea [None]
  - Nausea [None]
  - Vomiting [None]
  - Muscular weakness [None]
  - Hyperventilation [None]
  - Tachypnoea [None]
  - Feeling abnormal [None]
  - Asthenia [None]
  - Toxicity to various agents [None]
  - Lethargy [None]
  - Hypophagia [None]
  - Constipation [None]
